FAERS Safety Report 6934267-2 (Version None)
Quarter: 2010Q3

REPORT INFORMATION
  Report Type: 
  Country: None (occurrence: None)
  Receive Date: 20100820
  Receipt Date: 20100819
  Transmission Date: 20110219
  Serious: Yes (Death)
  Sender: FDA-Public Use
  Company Number: CH-ALLERGAN-1010753US

PATIENT
  Age: 53 Year
  Sex: Female

DRUGS (1)
  1. BOTOX [Suspect]
     Indication: MUSCLE SPASTICITY
     Dosage: 150 UNITS, SINGLE
     Route: 030
     Dates: start: 20100817, end: 20100817

REACTIONS (1)
  - DEATH [None]
